FAERS Safety Report 10383488 (Version 1)
Quarter: 2014Q3

REPORT INFORMATION
  Report Type: Spontaneous
  Country: ES (occurrence: ES)
  Receive Date: 20140814
  Receipt Date: 20140814
  Transmission Date: 20150326
  Serious: Yes (Life-Threatening, Hospitalization)
  Sender: FDA-Public Use
  Company Number: ES-PFIZER INC-2014223806

PATIENT
  Age: 62 Year
  Sex: Female

DRUGS (13)
  1. FUROSEMIDE. [Concomitant]
     Active Substance: FUROSEMIDE
     Indication: HYPERTENSION
     Dosage: 40 MG, 3X/DAY
     Route: 048
     Dates: start: 20130425
  2. ADIRO [Concomitant]
     Active Substance: ASPIRIN
     Dosage: 100 MG, 1X/DAY
     Route: 048
     Dates: start: 20130727
  3. HIDROFEROL [Concomitant]
     Active Substance: CALCIFEDIOL
     Dosage: 266 UG EVERY 2 WEEKS
     Route: 048
     Dates: start: 20130613
  4. ALDACTONE [Suspect]
     Active Substance: SPIRONOLACTONE
     Indication: HYPERTENSIVE CARDIOMYOPATHY
     Dosage: 25 MG, 1X/DAY
     Route: 048
     Dates: start: 20130613, end: 20130926
  5. CALCIUM ACETATE. [Concomitant]
     Active Substance: CALCIUM ACETATE
     Dosage: 950 MG, 2X/DAY
     Route: 048
     Dates: start: 20130123
  6. BICARBONATE SODIUM [Concomitant]
     Indication: RENAL FAILURE CHRONIC
     Dosage: 1 G, 2X/DAY
     Route: 048
     Dates: start: 20130613
  7. PRANDIN [Concomitant]
     Active Substance: REPAGLINIDE
     Indication: TYPE 2 DIABETES MELLITUS
     Dosage: 0.75 MG, 2X/DAY
     Route: 048
     Dates: start: 20130727
  8. PAROXETINE [Concomitant]
     Active Substance: PAROXETINE\PAROXETINE HYDROCHLORIDE
     Indication: DEPRESSION
     Dosage: 20 MG, 1X/DAY
     Route: 048
     Dates: start: 20130727
  9. LEVOTHYROXINE [Concomitant]
     Active Substance: LEVOTHYROXINE
     Indication: HYPOTHYROIDISM
     Dosage: 75 UG, 1X/DAY
     Route: 048
     Dates: start: 20121011
  10. GEMFIBROZIL. [Concomitant]
     Active Substance: GEMFIBROZIL
     Indication: DYSLIPIDAEMIA
     Dosage: UNK
     Route: 048
     Dates: start: 20130727
  11. SIMVASTATIN. [Concomitant]
     Active Substance: SIMVASTATIN
     Indication: DYSLIPIDAEMIA
     Dosage: 20 MG, 1X/DAY
     Route: 048
     Dates: start: 20130613
  12. ADALAT [Concomitant]
     Active Substance: NIFEDIPINE
     Indication: HYPERTENSION
     Dosage: 30 MG, 2X/DAY
     Route: 048
     Dates: start: 20130410
  13. ROCALTROL [Concomitant]
     Active Substance: CALCITRIOL
     Dosage: 0.25 UG, 1X/DAY
     Route: 048
     Dates: start: 20130613

REACTIONS (2)
  - Hyperkalaemia [Recovered/Resolved]
  - Sinoatrial block [Recovered/Resolved]

NARRATIVE: CASE EVENT DATE: 20130926
